FAERS Safety Report 15826142 (Version 1)
Quarter: 2019Q1

REPORT INFORMATION
  Report Type: Spontaneous
  Country: DE (occurrence: DE)
  Receive Date: 20190115
  Receipt Date: 20190115
  Transmission Date: 20190417
  Serious: Yes (Other)
  Sender: FDA-Public Use
  Company Number: PHHY2018DE144553

PATIENT
  Age: 64 Year
  Sex: Female

DRUGS (1)
  1. CLINDAMYCIN. [Suspect]
     Active Substance: CLINDAMYCIN
     Indication: ANTIBIOTIC PROPHYLAXIS
     Dosage: 1.2 G, QD (FOR 10 DAYS)
     Route: 048

REACTIONS (3)
  - Drug resistance [Unknown]
  - Abscess [Recovering/Resolving]
  - Graft infection [Unknown]
